FAERS Safety Report 7260439-6 (Version None)
Quarter: 2011Q1

REPORT INFORMATION
  Report Type: 
  Country: None (occurrence: None)
  Receive Date: 20110130
  Receipt Date: 20101109
  Transmission Date: 20110831
  Serious: No
  Sender: FDA-Public Use
  Company Number: US-ABBOTT-10P-163-0684497-00

PATIENT
  Sex: Female
  Weight: 68.1 kg

DRUGS (4)
  1. LIALDA [Concomitant]
     Indication: CROHN'S DISEASE
  2. HUMIRA [Suspect]
     Indication: CROHN'S DISEASE
     Dates: start: 20081201, end: 20090601
  3. MERCAPTOPURINE [Concomitant]
     Indication: CROHN'S DISEASE
  4. HUMIRA [Suspect]
     Dates: start: 20090601

REACTIONS (2)
  - ABDOMINAL PAIN [None]
  - INJECTION SITE PAIN [None]
